FAERS Safety Report 8125605-6 (Version None)
Quarter: 2012Q1

REPORT INFORMATION
  Report Type: 
  Country: None (occurrence: None)
  Receive Date: 20120209
  Receipt Date: 20120203
  Transmission Date: 20120608
  Serious: Yes (Hospitalization, Other)
  Sender: FDA-Public Use
  Company Number: US-PFIZER INC-2011284269

PATIENT
  Sex: Male

DRUGS (1)
  1. CHANTIX [Suspect]
     Indication: SMOKING CESSATION THERAPY
     Dosage: STARTING PACK (0.5 MG; 1.0 MG)
     Dates: start: 20071015, end: 20080101

REACTIONS (5)
  - EMOTIONAL DISTRESS [None]
  - ANXIETY [None]
  - MENTAL DISORDER [None]
  - SYNCOPE [None]
  - DEPRESSION [None]
